FAERS Safety Report 25225828 (Version 4)
Quarter: 2025Q3

REPORT INFORMATION
  Report Type: Spontaneous
  Country: US (occurrence: US)
  Receive Date: 20250422
  Receipt Date: 20250813
  Transmission Date: 20251020
  Serious: No
  Sender: SANOFI AVENTIS
  Company Number: US-SA-2025SA114597

PATIENT
  Age: 30 Year
  Sex: Male

DRUGS (1)
  1. DUPIXENT [Suspect]
     Active Substance: DUPILUMAB
     Indication: Dermatitis atopic
     Dosage: 300 MG, QOW
     Route: 058

REACTIONS (13)
  - Musculoskeletal stiffness [Unknown]
  - Hypoaesthesia [Unknown]
  - Injection site mass [Unknown]
  - Acne [Recovering/Resolving]
  - Injection site inflammation [Unknown]
  - Injection site irritation [Recovered/Resolved]
  - Eczema [Unknown]
  - Pruritus [Unknown]
  - Rash [Unknown]
  - Injection site rash [Unknown]
  - Injection site swelling [Recovered/Resolved]
  - Injection site pain [Recovered/Resolved]
  - Injection site erythema [Recovered/Resolved]
